FAERS Safety Report 10585581 (Version 1)
Quarter: 2014Q4

REPORT INFORMATION
  Report Type: Spontaneous
  Country: US (occurrence: US)
  Receive Date: 20141114
  Receipt Date: 20141114
  Transmission Date: 20150529
  Serious: Yes (Other)
  Sender: FDA-Public Use
  Company Number: US-GLAXOSMITHKLINE-US2014GSK020936

PATIENT
  Sex: Male

DRUGS (1)
  1. AVANDIA [Suspect]
     Active Substance: ROSIGLITAZONE MALEATE
     Indication: DIABETES MELLITUS
     Dosage: 4 MG, UNK
     Route: 048
     Dates: start: 20071011, end: 20100108

REACTIONS (5)
  - Angina unstable [Unknown]
  - Atrial septal defect [Unknown]
  - Hypertensive heart disease [Unknown]
  - Arteriosclerosis [Unknown]
  - Coronary artery disease [Unknown]
